FAERS Safety Report 22395555 (Version 3)
Quarter: 2024Q1

REPORT INFORMATION
  Report Type: Report from Study
  Country: CN (occurrence: CN)
  Receive Date: 20230601
  Receipt Date: 20240326
  Transmission Date: 20240410
  Serious: No
  Sender: FDA-Public Use
  Company Number: CN-009507513-2305CHN009296

PATIENT
  Age: 51 Year
  Sex: Male
  Weight: 79 kg

DRUGS (4)
  1. ERTUGLIFLOZIN [Suspect]
     Active Substance: ERTUGLIFLOZIN
     Indication: Diabetes mellitus
     Dosage: 5 MILLIGRAM, QD
     Route: 048
     Dates: start: 20230210
  2. METFORMIN HYDROCHLORIDE [Concomitant]
     Active Substance: METFORMIN HYDROCHLORIDE
     Indication: Diabetes mellitus
     Dosage: 0.5 GRAM, BID
     Route: 048
     Dates: start: 20230209
  3. ALOGLIPTIN [Concomitant]
     Active Substance: ALOGLIPTIN
     Indication: Diabetes mellitus
     Dosage: 25 MILLIGRAM, QD
     Route: 048
     Dates: start: 20230209
  4. HERBALS\PANAX NOTOGINSENG ROOT EXTRACT [Concomitant]
     Active Substance: HERBALS\PANAX NOTOGINSENG ROOT EXTRACT
     Indication: Hyperlipidaemia
     Dosage: 0.66 MILLIGRAM, BID
     Route: 048
     Dates: start: 20230324

REACTIONS (1)
  - Urine ketone body present [Recovered/Resolved]

NARRATIVE: CASE EVENT DATE: 20230324
